FAERS Safety Report 4270780-7 (Version None)
Quarter: 2004Q1

REPORT INFORMATION
  Report Type: 
  Country: None (occurrence: None)
  Receive Date: 20040113
  Receipt Date: 20040102
  Transmission Date: 20041129
  Serious: Yes (Hospitalization)
  Sender: FDA-Public Use
  Company Number: US-JNJFOC-20040100476

PATIENT
  Age: 39 Year
  Sex: Male

DRUGS (5)
  1. REMICADE [Suspect]
     Indication: PERICARDITIS RHEUMATIC
     Dosage: INTRAVENOUS
     Route: 042
  2. PREDNISONE [Concomitant]
  3. ANALGESICS (ANALGESICS) [Concomitant]
  4. NSAIDS (NSAID'S) [Concomitant]
  5. METHOTREXATE [Concomitant]

REACTIONS (1)
  - SPINAL FRACTURE [None]
